FAERS Safety Report 12576759 (Version 2)
Quarter: 2016Q4

REPORT INFORMATION
  Report Type: Spontaneous
  Country: US (occurrence: US)
  Receive Date: 20160720
  Receipt Date: 20161019
  Transmission Date: 20170207
  Serious: No
  Sender: FDA-Public Use
  Company Number: US-OTSUKA-2016_010694

PATIENT

DRUGS (1)
  1. REXULTI [Suspect]
     Active Substance: BREXPIPRAZOLE
     Indication: PRODUCT USED FOR UNKNOWN INDICATION
     Dosage: UNK
     Route: 065

REACTIONS (8)
  - Mental disorder [Unknown]
  - Pain [Unknown]
  - Feeling abnormal [Unknown]
  - Crying [Unknown]
  - Insomnia [Unknown]
  - Depression [Unknown]
  - Anxiety [Unknown]
  - Fatigue [Unknown]
